FAERS Safety Report 15637497 (Version 1)
Quarter: 2018Q4

REPORT INFORMATION
  Report Type: Spontaneous
  Country: US (occurrence: US)
  Receive Date: 20181120
  Receipt Date: 20181120
  Transmission Date: 20190205
  Serious: No
  Sender: FDA-Public Use
  Company Number: US-JNJFOC-20180504999

PATIENT
  Sex: Female
  Weight: 64 kg

DRUGS (9)
  1. VITAMIN D [Concomitant]
     Active Substance: CHOLECALCIFEROL
  2. MAGNESIUM [Concomitant]
     Active Substance: MAGNESIUM
  3. IMBRUVICA [Suspect]
     Active Substance: IBRUTINIB
     Indication: COLON CANCER
     Route: 048
     Dates: start: 20171222
  4. POTASSIUM [Concomitant]
     Active Substance: POTASSIUM
  5. DEXAMETHASONE. [Concomitant]
     Active Substance: DEXAMETHASONE
  6. IMBRUVICA [Suspect]
     Active Substance: IBRUTINIB
     Indication: COLON CANCER
     Dosage: ALTERNATING DOSE FROM 280 MG DAILY TO 140 MG DAILY
     Route: 048
     Dates: start: 20171227
  7. IMBRUVICA [Suspect]
     Active Substance: IBRUTINIB
     Indication: COLON CANCER
     Route: 048
  8. IRON [Concomitant]
     Active Substance: IRON
  9. IMBRUVICA [Suspect]
     Active Substance: IBRUTINIB
     Indication: COLON CANCER
     Dosage: ALTERNATING DOSE FROM 280 MG DAILY TO 140 MG DAILY
     Route: 048

REACTIONS (2)
  - Disease progression [Unknown]
  - Liver function test abnormal [Unknown]
